FAERS Safety Report 9500468 (Version 1)
Quarter: 2013Q1

REPORT INFORMATION
  Report Type: Spontaneous
  Country: US (occurrence: None)
  Receive Date: 20130107
  Receipt Date: 20130107
  Transmission Date: 20140127
  Serious: Yes (Hospitalization, Other)
  Sender: FDA-Public Use
  Company Number: PHEH2012US017620

PATIENT
  Age: 45 Year
  Sex: Male

DRUGS (5)
  1. GILENYA (FTY)CAPSULE, 0.5MG [Suspect]
     Indication: RELAPSING-REMITTING MULTIPLE SCLEROSIS
     Route: 048
     Dates: start: 20120906, end: 20120906
  2. NEURONTIN (GABAPENTIN) [Concomitant]
  3. BACLOFEN (BACLOFEN) [Concomitant]
  4. SIMVASTATIN (SIMVASTATIN) [Concomitant]
  5. NORCO (HYDROCONE BITRATE, PARACETAMOL), 500 MG [Concomitant]

REACTIONS (1)
  - Relapsing-remitting multiple sclerosis [None]
